FAERS Safety Report 5506571-6 (Version None)
Quarter: 2007Q4

REPORT INFORMATION
  Report Type: 
  Country: None (occurrence: None)
  Receive Date: 20071101
  Receipt Date: 20071005
  Transmission Date: 20080405
  Serious: No
  Sender: FDA-Public Use
  Company Number: 60486

PATIENT
  Age: 210 Day
  Sex: Female

DRUGS (1)
  1. IBUPROFEN [Suspect]
     Indication: ANALGESIA
     Dosage: ORAL
     Route: 048

REACTIONS (1)
  - INTESTINAL PERFORATION [None]
